FAERS Safety Report 24048579 (Version 5)
Quarter: 2024Q4

REPORT INFORMATION
  Report Type: Report from Study
  Country: US (occurrence: US)
  Receive Date: 20240704
  Receipt Date: 20241105
  Transmission Date: 20250115
  Serious: Yes (Other)
  Sender: NOVARTIS
  Company Number: US-002147023-NVSC2024US010703

PATIENT
  Age: 29 Year
  Sex: Female

DRUGS (1)
  1. KESIMPTA [Suspect]
     Active Substance: OFATUMUMAB
     Indication: Product used for unknown indication
     Dosage: UNK
     Route: 065
     Dates: start: 20231219

REACTIONS (25)
  - Progressive multiple sclerosis [Unknown]
  - Pyrexia [Unknown]
  - Flushing [Unknown]
  - Dizziness [Unknown]
  - Vertigo [Unknown]
  - Sleep disorder [Unknown]
  - Condition aggravated [Unknown]
  - Nasopharyngitis [Unknown]
  - Joint injury [Unknown]
  - Fatigue [Unknown]
  - Mental fatigue [Unknown]
  - Inflammation [Unknown]
  - Negative thoughts [Unknown]
  - Gait disturbance [Unknown]
  - Pain in extremity [Unknown]
  - Cartilage injury [Unknown]
  - Back pain [Unknown]
  - Arthralgia [Unknown]
  - Muscular weakness [Unknown]
  - Sensory disturbance [Unknown]
  - Vomiting [Unknown]
  - Feeling of body temperature change [Unknown]
  - Sciatica [Unknown]
  - Bone disorder [Unknown]
  - Inappropriate schedule of product administration [Unknown]

NARRATIVE: CASE EVENT DATE: 20240116
